FAERS Safety Report 11801141 (Version 4)
Quarter: 2020Q2

REPORT INFORMATION
  Report Type: Spontaneous
  Country: DE (occurrence: DE)
  Receive Date: 20151204
  Receipt Date: 20200416
  Transmission Date: 20200713
  Serious: Yes (Congenital Anomaly, Other)
  Sender: FDA-Public Use
  Company Number: DE-AUROBINDO-AUR-APL-2015-10930

PATIENT
  Sex: Male
  Weight: 3.14 kg

DRUGS (7)
  1. SERTRALINE [Suspect]
     Active Substance: SERTRALINE HYDROCHLORIDE
     Indication: DEPRESSION
     Dosage: 150 MILLIGRAM, ONCE A DAY
     Route: 064
     Dates: start: 20140601, end: 20140718
  2. SERTRALINE [Suspect]
     Active Substance: SERTRALINE HYDROCHLORIDE
     Dosage: 800 MILLIGRAM/INSGESAMT), 4.4. - 4.4. GESTATIONAL WEEK
     Route: 064
     Dates: start: 20140703, end: 20140703
  3. PROMETHAZINE [Suspect]
     Active Substance: PROMETHAZINE HYDROCHLORIDE
     Indication: RESTLESSNESS
     Dosage: 200 MILLIGRAM, ONCE A DAY, 0. - 6.5. GESTATIONAL WEEK
     Route: 064
     Dates: start: 20140601, end: 20140718
  4. PROMETHAZINE [Suspect]
     Active Substance: PROMETHAZINE HYDROCHLORIDE
     Dosage: 200 MILLIGRAM, ONCE A DAY
     Route: 064
     Dates: start: 20140615, end: 20140718
  5. SERTRALINE [Suspect]
     Active Substance: SERTRALINE HYDROCHLORIDE
     Dosage: 150 MILLIGRAM, ONCE A DAY
     Route: 064
     Dates: start: 20140615, end: 201407
  6. DIAZEPAM. [Concomitant]
     Active Substance: DIAZEPAM
     Indication: RESTLESSNESS
     Dosage: 5 MILLIGRAM, ONCE A DAY
     Route: 064
  7. FOLSAEURE [Concomitant]
     Active Substance: FOLIC ACID
     Indication: PROPHYLAXIS OF NEURAL TUBE DEFECT
     Dosage: UNK
     Route: 064

REACTIONS (3)
  - Atrial septal defect [Not Recovered/Not Resolved]
  - Aortic valve stenosis [Recovered/Resolved with Sequelae]
  - Foetal exposure during pregnancy [Not Recovered/Not Resolved]

NARRATIVE: CASE EVENT DATE: 20140615
